FAERS Safety Report 9154147 (Version 1)
Quarter: 2013Q1

REPORT INFORMATION
  Report Type: Spontaneous
  Country: US (occurrence: None)
  Receive Date: 20130306
  Receipt Date: 20130306
  Transmission Date: 20140127
  Serious: Yes (Life-Threatening, Hospitalization)
  Sender: FDA-Public Use
  Company Number: None

PATIENT
  Age: 38 Year
  Sex: Male
  Weight: 125.65 kg

DRUGS (1)
  1. CLOZAPINE [Suspect]
     Indication: SCHIZOPHRENIA, PARANOID TYPE
     Route: 048
     Dates: start: 20120130, end: 20120219

REACTIONS (8)
  - Hypotension [None]
  - Syncope [None]
  - Tachycardia [None]
  - Dizziness [None]
  - Dyspnoea [None]
  - Pyrexia [None]
  - Renal impairment [None]
  - Myocarditis [None]
